FAERS Safety Report 10384872 (Version 1)
Quarter: 2014Q1

REPORT INFORMATION
  Report Type: Spontaneous
  Country: US (occurrence: None)
  Receive Date: 20140306
  Receipt Date: 20140306
  Transmission Date: 20141002
  Serious: Yes (Other)
  Sender: FDA-Public Use
  Company Number: 163-21880-13042806

PATIENT
  Age: 81 Year
  Sex: Female

DRUGS (3)
  1. REVLIMID (LENALIDOMIDE) (10 MILLIGRAM, CAPSULES) [Suspect]
     Indication: PLASMA CELL MYELOMA
     Route: 048
     Dates: start: 20120629, end: 2012
  2. ARANESP (DARBEPOETIN ALFA) [Concomitant]
  3. ALKERAN (MELPHALAN) (MELPHALAN) [Concomitant]

REACTIONS (1)
  - Atrial flutter [None]
